FAERS Safety Report 21644017 (Version 1)
Quarter: 2022Q4

REPORT INFORMATION
  Report Type: Report from Study
  Country: US (occurrence: US)
  Receive Date: 20221125
  Receipt Date: 20221125
  Transmission Date: 20230113
  Serious: No
  Sender: FDA-Public Use
  Company Number: US-ABBVIE-4212266

PATIENT
  Age: 88 Year
  Sex: Female

DRUGS (8)
  1. CREON [Suspect]
     Active Substance: PANCRELIPASE AMYLASE\PANCRELIPASE LIPASE\PANCRELIPASE PROTEASE
     Indication: Pancreatic atrophy
     Dosage: FORM STRENGTH: 36000 IU (INTERNATIONAL UNIT)
     Route: 048
     Dates: start: 20220825
  2. CREON [Suspect]
     Active Substance: PANCRELIPASE AMYLASE\PANCRELIPASE LIPASE\PANCRELIPASE PROTEASE
     Indication: Pancreatic atrophy
     Dosage: TIME INTERVAL: 0.33333333 DAYS: FORM STRENGTH: 36000 IU (INTERNATIONAL UNIT)
     Route: 048
     Dates: start: 20220701, end: 20220825
  3. MODERNA COVID-19 VACCINE [Concomitant]
     Active Substance: ELASOMERAN
     Indication: COVID-19 immunisation
     Route: 030
  4. DULCOLAX NOS [Concomitant]
     Active Substance: BISACODYL OR DOCUSATE SODIUM
     Indication: Constipation
  5. LINZESS [Concomitant]
     Active Substance: LINACLOTIDE
     Indication: Bowel movement irregularity
  6. PRILOSEC [Concomitant]
     Active Substance: OMEPRAZOLE MAGNESIUM
     Indication: Dyspepsia
  7. DILTIAZEM [Concomitant]
     Active Substance: DILTIAZEM
     Indication: Blood pressure increased
  8. GLYCERIN [Concomitant]
     Active Substance: GLYCERIN
     Indication: Constipation

REACTIONS (2)
  - Constipation [Recovering/Resolving]
  - Diarrhoea [Recovered/Resolved]

NARRATIVE: CASE EVENT DATE: 20220801
